FAERS Safety Report 8021038-1 (Version None)
Quarter: 2011Q4

REPORT INFORMATION
  Report Type: 
  Country: None (occurrence: None)
  Receive Date: 20111229
  Receipt Date: 20111229
  Transmission Date: 20120403
  Serious: Yes (Life-Threatening, Hospitalization)
  Sender: FDA-Public Use
  Company Number: None

PATIENT
  Age: 79 Year
  Sex: Male
  Weight: 97.977 kg

DRUGS (9)
  1. PRADAXA [Suspect]
  2. TOPROL-XL [Concomitant]
  3. LOVAZA [Concomitant]
  4. FUROSEMIDE [Concomitant]
  5. CRESTOR [Concomitant]
  6. MULTAQ [Suspect]
     Indication: ATRIAL FLUTTER
  7. EPLERENONE [Concomitant]
  8. COLCHICINE [Concomitant]
  9. ASPIRIN [Concomitant]

REACTIONS (3)
  - DIZZINESS [None]
  - DYSPNOEA EXERTIONAL [None]
  - GASTROINTESTINAL HAEMORRHAGE [None]
